FAERS Safety Report 19144396 (Version 1)
Quarter: 2021Q2

REPORT INFORMATION
  Report Type: Spontaneous
  Country: SK (occurrence: SK)
  Receive Date: 20210416
  Receipt Date: 20210416
  Transmission Date: 20210717
  Serious: Yes (Other)
  Sender: FDA-Public Use
  Company Number: SK-ROCHE-2804892

PATIENT
  Age: 67 Year
  Sex: Female
  Weight: 75 kg

DRUGS (4)
  1. DITHIADEN [Suspect]
     Active Substance: BISULEPIN
     Indication: COLON CANCER
     Dosage: 2 MILLIGRAM
     Route: 042
     Dates: start: 20210224, end: 20210304
  2. OXALIPLATIN. [Suspect]
     Active Substance: OXALIPLATIN
     Indication: COLON CANCER
     Dosage: 70 MILLIGRAM/SQ. METER
     Route: 065
     Dates: start: 20210224, end: 20210304
  3. DEXAMETHAZONE [Suspect]
     Active Substance: DEXAMETHASONE
     Indication: COLON CANCER
     Dosage: 16 MILLIGRAM
     Route: 042
     Dates: start: 20210224, end: 20210304
  4. CAPECITABINE. [Suspect]
     Active Substance: CAPECITABINE
     Indication: COLON CANCER
     Dosage: 500 MILLIGRAM,1G/M2
     Route: 048
     Dates: start: 20210224, end: 20210304

REACTIONS (2)
  - Dysphonia [Unknown]
  - Angioedema [Unknown]
